FAERS Safety Report 4321141-3 (Version None)
Quarter: 2004Q1

REPORT INFORMATION
  Report Type: 
  Country: None (occurrence: None)
  Receive Date: 20040315
  Receipt Date: 20031027
  Transmission Date: 20041129
  Serious: Yes (Hospitalization)
  Sender: FDA-Public Use
  Company Number: US_031098492

PATIENT
  Age: 66 Year
  Sex: Male

DRUGS (1)
  1. GEMZAR [Suspect]
     Indication: HODGKIN'S DISEASE

REACTIONS (1)
  - ACUTE RESPIRATORY DISTRESS SYNDROME [None]
